FAERS Safety Report 24656328 (Version 1)
Quarter: 2024Q4

REPORT INFORMATION
  Report Type: Spontaneous
  Country: FR (occurrence: FR)
  Receive Date: 20241124
  Receipt Date: 20241124
  Transmission Date: 20250115
  Serious: Yes (Hospitalization, Other)
  Sender: STRIDES
  Company Number: FR-STRIDES ARCOLAB LIMITED-2024SP015198

PATIENT
  Age: 3 Decade
  Sex: Female

DRUGS (3)
  1. AMPICILLIN TRIHYDRATE [Suspect]
     Active Substance: AMPICILLIN TRIHYDRATE
     Indication: Product used for unknown indication
     Dosage: UNK
     Route: 065
  2. GENTAMICIN [Suspect]
     Active Substance: GENTAMICIN
     Indication: Product used for unknown indication
     Dosage: UNK
     Route: 065
  3. BETAMETHASONE [Suspect]
     Active Substance: BETAMETHASONE
     Indication: Maternal therapy to enhance foetal lung maturity
     Dosage: 12 MILLIGRAM, QD, FOR TWO DAYS
     Route: 065

REACTIONS (6)
  - Premature delivery [Unknown]
  - Acute kidney injury [Unknown]
  - Haemoglobinuria [Unknown]
  - Proteinuria [Unknown]
  - Anaemia [Unknown]
  - Maternal exposure during pregnancy [Unknown]
